FAERS Safety Report 23993385 (Version 1)
Quarter: 2024Q2

REPORT INFORMATION
  Report Type: Report from Study
  Country: US (occurrence: US)
  Receive Date: 20240620
  Receipt Date: 20240620
  Transmission Date: 20240715
  Serious: Yes (Hospitalization, Other)
  Sender: FDA-Public Use
  Company Number: US-GILEAD-2024-0677715

PATIENT
  Age: 24 Year
  Sex: Female

DRUGS (1)
  1. AZTREONAM LYSINE [Suspect]
     Active Substance: AZTREONAM LYSINE
     Indication: Cystic fibrosis
     Dosage: INHALE 1 ML SOLUTION BY NEBULIZER AS DIRECTED THREE TIMES DAILY. ALTERNATE 28 DAYS ON 28 DAYS OFF
     Route: 055
     Dates: start: 20231014

REACTIONS (3)
  - Pneumonia [Unknown]
  - Maternal exposure during pregnancy [Unknown]
  - Dyspnoea [Unknown]
